FAERS Safety Report 6118803-4 (Version None)
Quarter: 2009Q1

REPORT INFORMATION
  Report Type: 
  Country: None (occurrence: None)
  Receive Date: 20090316
  Receipt Date: 20090306
  Transmission Date: 20090719
  Serious: Yes (Hospitalization)
  Sender: FDA-Public Use
  Company Number: PHHY2009CH08004

PATIENT
  Age: 74 Year
  Sex: Female

DRUGS (7)
  1. VOLTAREN [Suspect]
     Indication: OSTEOARTHRITIS
     Dosage: 150 MG/DAY
     Dates: start: 20080820, end: 20080830
  2. PHYSIOTENS [Concomitant]
     Indication: HYPERTENSION
  3. DILATREND [Concomitant]
     Indication: HYPERTENSION
  4. TORSEMIDE [Concomitant]
     Indication: RENAL FAILURE CHRONIC
  5. EXFORGE [Concomitant]
     Indication: HYPERTENSION
  6. PARACETAMOL [Concomitant]
     Indication: OSTEOARTHRITIS
  7. LALUGEN PLUS [Concomitant]

REACTIONS (12)
  - ANAEMIA [None]
  - COLONOSCOPY [None]
  - DIVERTICULUM [None]
  - ENDOSCOPY SMALL INTESTINE [None]
  - ENDOSCOPY UPPER GASTROINTESTINAL TRACT [None]
  - GASTROINTESTINAL DISORDER [None]
  - GASTROINTESTINAL HAEMORRHAGE [None]
  - HAEMATEMESIS [None]
  - HIATUS HERNIA [None]
  - LACTIC ACIDOSIS [None]
  - MELAENA [None]
  - SMALL INTESTINAL HAEMORRHAGE [None]
